FAERS Safety Report 9868560 (Version 6)
Quarter: 2016Q1

REPORT INFORMATION
  Report Type: Report from Study
  Country: FI (occurrence: FI)
  Receive Date: 20140204
  Receipt Date: 20160226
  Transmission Date: 20160526
  Serious: Yes (Hospitalization)
  Sender: FDA-Public Use
  Company Number: FI-SA-2014SA010738

PATIENT
  Age: 43 Year
  Sex: Female
  Weight: 57.3 kg

DRUGS (10)
  1. RIVATRIL [Concomitant]
     Active Substance: CLONAZEPAM
     Indication: MULTIPLE SCLEROSIS
     Route: 048
     Dates: start: 20060511
  2. LORATADINE. [Concomitant]
     Active Substance: LORATADINE
     Indication: HYPERSENSITIVITY
     Route: 048
     Dates: start: 20131116
  3. GABAPENTIN. [Concomitant]
     Active Substance: GABAPENTIN
     Indication: NEURALGIA
     Route: 048
     Dates: start: 20090827
  4. URETREN [Concomitant]
     Indication: HYPERTENSION
     Route: 048
     Dates: start: 20131003, end: 20131204
  5. BETMIGA [Suspect]
     Active Substance: MIRABEGRON
     Indication: DYSURIA
     Route: 048
     Dates: start: 20131117
  6. VITAMIN D [Concomitant]
     Active Substance: CHOLECALCIFEROL
     Indication: PROPHYLAXIS
     Route: 048
     Dates: start: 20131201
  7. TERIFLUNOMIDE [Suspect]
     Active Substance: TERIFLUNOMIDE
     Indication: MULTIPLE SCLEROSIS RELAPSE
     Route: 048
     Dates: start: 20100209, end: 20140115
  8. MODIODAL [Suspect]
     Active Substance: MODAFINIL
     Indication: FATIGUE
     Route: 048
     Dates: start: 20090901
  9. CYMBALTA [Concomitant]
     Active Substance: DULOXETINE HYDROCHLORIDE
     Indication: DEPRESSION
     Route: 048
     Dates: start: 20131205, end: 20140107
  10. CALCICHEW D3 [Concomitant]
     Active Substance: CALCIUM\CHOLECALCIFEROL
     Indication: PROPHYLAXIS
     Route: 048
     Dates: start: 20131201

REACTIONS (2)
  - Hepatic enzyme increased [Recovered/Resolved]
  - Pyrexia [Recovered/Resolved]

NARRATIVE: CASE EVENT DATE: 20140105
